FAERS Safety Report 13323990 (Version 1)
Quarter: 2017Q1

REPORT INFORMATION
  Report Type: Other
  Country: None (occurrence: US)
  Receive Date: 20170310
  Receipt Date: 20170310
  Transmission Date: 20170428
  Serious: Yes (Other)
  Sender: FDA-Public Use
  Company Number: US-GUTHY-RENKER LLC-1064121

PATIENT
  Age: 47 Year
  Sex: Female

DRUGS (3)
  1. UNDISCLOSED SKIN CARE PRODUCT FOR DRY SKIN [Concomitant]
  2. UNDISCLOSED MEDICATIONS FOR MS, THROAT CANCER, TYPE 2 DIABETES [Concomitant]
  3. IT COSMETICS BYE BYE FOUNDATION WITH SPF 50+ [Suspect]
     Active Substance: TITANIUM DIOXIDE\ZINC OXIDE
     Indication: PROPHYLAXIS AGAINST SOLAR RADIATION
     Route: 061
     Dates: start: 20170201

REACTIONS (4)
  - Pain [None]
  - Contusion [None]
  - Application site pruritus [None]
  - Swelling face [Recovering/Resolving]

NARRATIVE: CASE EVENT DATE: 20170201
